FAERS Safety Report 21123530 (Version 6)
Quarter: 2023Q2

REPORT INFORMATION
  Report Type: Report from Study
  Country: JP (occurrence: JP)
  Receive Date: 20220724
  Receipt Date: 20230622
  Transmission Date: 20230722
  Serious: Yes (Hospitalization, Other)
  Sender: FDA-Public Use
  Company Number: JP-ONO-2022JP008763

PATIENT
  Age: 63 Year
  Sex: Male
  Weight: 49 kg

DRUGS (7)
  1. YERVOY [Suspect]
     Active Substance: IPILIMUMAB
     Indication: Metastatic renal cell carcinoma
     Dosage: 1 MG/KG
     Route: 041
     Dates: start: 20201014, end: 20201216
  2. YERVOY [Suspect]
     Active Substance: IPILIMUMAB
  3. YERVOY [Suspect]
     Active Substance: IPILIMUMAB
  4. OPDIVO [Suspect]
     Active Substance: NIVOLUMAB
     Indication: Metastatic renal cell carcinoma
     Dosage: 240 MG
     Route: 041
     Dates: start: 20201014, end: 20201216
  5. OPDIVO [Suspect]
     Active Substance: NIVOLUMAB
     Dosage: 240 MG
     Route: 041
     Dates: start: 20210721, end: 20211026
  6. OPDIVO [Suspect]
     Active Substance: NIVOLUMAB
     Dosage: 480 MG
     Route: 041
     Dates: start: 20220118, end: 20220412
  7. OPDIVO [Suspect]
     Active Substance: NIVOLUMAB
     Route: 041
     Dates: start: 20220412, end: 20220412

REACTIONS (3)
  - Malaise [Recovered/Resolved]
  - Malignant neoplasm progression [Unknown]
  - Adrenocorticotropic hormone deficiency [Not Recovered/Not Resolved]

NARRATIVE: CASE EVENT DATE: 20201027
